FAERS Safety Report 21747059 (Version 3)
Quarter: 2023Q1

REPORT INFORMATION
  Report Type: Report from Study
  Country: FR (occurrence: None)
  Receive Date: 20221219
  Receipt Date: 20230113
  Transmission Date: 20230418
  Serious: Yes (Hospitalization)
  Sender: FDA-Public Use
  Company Number: FR-ROCHE-3245297

PATIENT
  Age: 77 Year
  Sex: Male

DRUGS (3)
  1. ATEZOLIZUMAB [Suspect]
     Active Substance: ATEZOLIZUMAB
     Indication: Non-small cell lung cancer
     Dosage: DATE OF LAST ADMINISTRATION OF STUDY TREATMENT WAS ON 22/NOV/2022
     Route: 065
     Dates: start: 20221018
  2. PACLITAXEL [Suspect]
     Active Substance: PACLITAXEL
     Indication: Non-small cell lung cancer
     Dosage: DATE OF LAST ADMINISTRATION OF STUDY TREATMENT WAS ON 22/NOV/2022
     Route: 065
     Dates: start: 20221018
  3. CARBOPLATIN [Suspect]
     Active Substance: CARBOPLATIN
     Indication: Non-small cell lung cancer
     Dosage: DATE OF LAST ADMINISTRATION OF STUDY TREATMENT WAS ON 22/NOV/2022
     Route: 065
     Dates: start: 20221018

REACTIONS (2)
  - Loss of consciousness [Recovered/Resolved]
  - COVID-19 [Recovered/Resolved]

NARRATIVE: CASE EVENT DATE: 20221127
